FAERS Safety Report 25677625 (Version 2)
Quarter: 2025Q3

REPORT INFORMATION
  Report Type: Spontaneous
  Country: JP (occurrence: JP)
  Receive Date: 20250813
  Receipt Date: 20250912
  Transmission Date: 20251020
  Serious: Yes (Death, Other)
  Sender: LUNDBECK
  Company Number: JP-SAKK-2025SA233376AA

PATIENT
  Age: 2 Year
  Sex: Male

DRUGS (1)
  1. SABRIL [Suspect]
     Active Substance: VIGABATRIN
     Indication: Infantile spasms
     Route: 048
     Dates: start: 20241120, end: 20241228

REACTIONS (3)
  - Myocarditis [Fatal]
  - Encephalopathy [Fatal]
  - Condition aggravated [Fatal]

NARRATIVE: CASE EVENT DATE: 20241223
